FAERS Safety Report 8401992-6 (Version None)
Quarter: 2012Q2

REPORT INFORMATION
  Report Type: 
  Country: None (occurrence: None)
  Receive Date: 20120601
  Receipt Date: 20120521
  Transmission Date: 20120825
  Serious: No
  Sender: FDA-Public Use
  Company Number: US-PFIZER INC-2011219719

PATIENT
  Sex: Female

DRUGS (1)
  1. SUTENT [Suspect]
     Dosage: 50 MG, 1X/DAY (4 WEEKS ON/2 WEEKS OFF)
     Route: 048
     Dates: start: 20110903

REACTIONS (1)
  - NO ADVERSE EVENT [None]
